FAERS Safety Report 8341761-9 (Version None)
Quarter: 2012Q2

REPORT INFORMATION
  Report Type: 
  Country: None (occurrence: None)
  Receive Date: 20120503
  Receipt Date: 20120420
  Transmission Date: 20120825
  Serious: Yes (Other)
  Sender: FDA-Public Use
  Company Number: JPI-P-020944

PATIENT
  Age: 82 Year
  Sex: Female

DRUGS (2)
  1. AMITRIPTYLINE HCL [Suspect]
     Indication: PRODUCT USED FOR UNKNOWN INDICATION
  2. XYREM [Suspect]
     Indication: CATAPLEXY
     Dosage: ORAL
     Route: 048

REACTIONS (2)
  - STATUS EPILEPTICUS [None]
  - TREATMENT NONCOMPLIANCE [None]
